FAERS Safety Report 9337610 (Version 4)
Quarter: 2013Q3

REPORT INFORMATION
  Report Type: Report from Study
  Country: US (occurrence: US)
  Receive Date: 20130607
  Receipt Date: 20130904
  Transmission Date: 20140515
  Serious: Yes (Hospitalization)
  Sender: FDA-Public Use
  Company Number: US-ELI_LILLY_AND_COMPANY-US201305009544

PATIENT
  Age: 36 Year
  Sex: Male
  Weight: 68.03 kg

DRUGS (5)
  1. OLANZAPINE LONG-ACTING IM [Suspect]
     Indication: SCHIZOPHRENIA
     Dosage: 300 MG, OTHER
     Route: 030
     Dates: start: 20130509, end: 20130509
  2. OLANZAPINE LONG-ACTING IM [Suspect]
     Dosage: 300 MG, OTHER
     Route: 030
     Dates: start: 20130529
  3. ZYPREXA [Suspect]
     Dosage: 10 MG, EACH EVENING
     Route: 048
  4. ZYPREXA [Suspect]
     Dosage: UNK
     Dates: start: 20130621
  5. DEPAKOTE [Concomitant]
     Dosage: 1000 MG, UNK

REACTIONS (9)
  - Altered state of consciousness [Recovered/Resolved]
  - Sedation [Recovered/Resolved]
  - Somnolence [Recovered/Resolved]
  - Drooling [Recovered/Resolved]
  - Gait disturbance [Recovered/Resolved]
  - Dysarthria [Recovered/Resolved]
  - Body temperature increased [Recovered/Resolved]
  - Ocular hyperaemia [Recovered/Resolved]
  - Agitation [Recovered/Resolved]
